FAERS Safety Report 9066780 (Version 2)
Quarter: 2013Q1

REPORT INFORMATION
  Report Type: Spontaneous
  Country: US (occurrence: US)
  Receive Date: 20130214
  Receipt Date: 20130304
  Transmission Date: 20140127
  Serious: Yes (Death)
  Sender: FDA-Public Use
  Company Number: US-GLAXOSMITHKLINE-A1012078A

PATIENT
  Age: 64 Year
  Sex: Male

DRUGS (6)
  1. HYCAMTIN [Suspect]
     Indication: ILL-DEFINED DISORDER
     Dosage: 1MG PER DAY
     Route: 048
     Dates: start: 20121105, end: 20130205
  2. OXYCODONE [Concomitant]
  3. KLOR CON [Concomitant]
  4. FUROSEMIDE [Concomitant]
  5. ALLOPURINOL [Concomitant]
  6. EXFORGE [Concomitant]

REACTIONS (1)
  - Malignant neoplasm progression [Fatal]
